FAERS Safety Report 7524702-3 (Version None)
Quarter: 2011Q2

REPORT INFORMATION
  Report Type: 
  Country: None (occurrence: None)
  Receive Date: 20110606
  Receipt Date: 20110531
  Transmission Date: 20111010
  Serious: Yes (Other)
  Sender: FDA-Public Use
  Company Number: CA-PFIZER INC-2011115083

PATIENT
  Sex: Male

DRUGS (5)
  1. LYRICA [Suspect]
     Indication: NEURALGIA
     Dosage: 75 MG 1 TO 2 CAPSULES AT BEDTIME
     Route: 048
     Dates: start: 20110514, end: 20110516
  2. LYRICA [Suspect]
     Dosage: 75 MG, 2X/DAY
     Dates: start: 20110517, end: 20110521
  3. HYDROXYZINE [Concomitant]
     Indication: PRURITUS
     Dosage: UNK
  4. EMTEC-30 [Concomitant]
     Indication: BONE PAIN
     Dosage: UNK
  5. ZOPICLONE [Concomitant]
     Indication: INSOMNIA
     Dosage: UNK

REACTIONS (11)
  - WEIGHT INCREASED [None]
  - HEPATIC PAIN [None]
  - DRY MOUTH [None]
  - RENAL PAIN [None]
  - SWELLING [None]
  - DYSPNOEA [None]
  - RASH [None]
  - GENERALISED OEDEMA [None]
  - DYSURIA [None]
  - EYELID OEDEMA [None]
  - LYMPHADENOPATHY [None]
